FAERS Safety Report 22022697 (Version 1)
Quarter: 2023Q1

REPORT INFORMATION
  Report Type: Spontaneous
  Country: SE (occurrence: SE)
  Receive Date: 20230222
  Receipt Date: 20230222
  Transmission Date: 20230418
  Serious: Yes (Other)
  Sender: FDA-Public Use
  Company Number: None

PATIENT
  Age: 48 Year
  Sex: Female
  Weight: 62 kg

DRUGS (11)
  1. PROVERA [Suspect]
     Active Substance: MEDROXYPROGESTERONE ACETATE
     Indication: Uterine haemorrhage
     Dosage: 10 MG, DAILY
     Route: 048
     Dates: start: 20220113, end: 20220122
  2. PROVERA [Suspect]
     Active Substance: MEDROXYPROGESTERONE ACETATE
     Indication: Vaginal haemorrhage
  3. ESTRIOL [Concomitant]
     Active Substance: ESTRIOL
     Dosage: 2 DF, WEEKLY
     Route: 067
     Dates: start: 20220113
  4. LITHIUM SULFATE [Concomitant]
     Active Substance: LITHIUM SULFATE
     Dosage: 2 DF, DAILY
     Route: 048
     Dates: start: 2007
  5. ROSUVASTATIN CALCIUM [Concomitant]
     Active Substance: ROSUVASTATIN CALCIUM
     Dosage: 10 MG, DAILY
     Route: 048
     Dates: start: 2007
  6. PROPIOMAZINE [Concomitant]
     Active Substance: PROPIOMAZINE
     Dosage: 1-2 TABLETS IN THE EVENING
     Route: 048
     Dates: start: 2016
  7. CYANOCOBALAMIN [Concomitant]
     Active Substance: CYANOCOBALAMIN
     Dosage: 1 MG, DAILY
     Route: 048
     Dates: start: 2020
  8. LEVOTHYROXINE SODIUM [Concomitant]
     Active Substance: LEVOTHYROXINE SODIUM
     Dosage: 150 UG, WEEKLY
     Route: 048
     Dates: start: 1996
  9. LEVOTHYROXINE SODIUM [Concomitant]
     Active Substance: LEVOTHYROXINE SODIUM
     Dosage: 500 UG, WEEKLY
     Route: 048
     Dates: start: 1996
  10. UREA [Concomitant]
     Active Substance: UREA
     Dosage: EVERY DAY
     Route: 061
     Dates: start: 2019
  11. CHOLECALCIFEROL [Concomitant]
     Active Substance: CHOLECALCIFEROL
     Dosage: 800 IU, DAILY
     Route: 048
     Dates: start: 2016

REACTIONS (2)
  - Bipolar disorder [Recovering/Resolving]
  - Disease recurrence [Recovering/Resolving]

NARRATIVE: CASE EVENT DATE: 20220121
